FAERS Safety Report 6817659-1 (Version None)
Quarter: 2010Q3

REPORT INFORMATION
  Report Type: 
  Country: None (occurrence: None)
  Receive Date: 20100706
  Receipt Date: 20100623
  Transmission Date: 20110219
  Serious: Yes (Hospitalization, Other)
  Sender: FDA-Public Use
  Company Number: US-PFIZER INC-2010062253

PATIENT
  Sex: Male

DRUGS (24)
  1. SUNITINIB MALATE [Suspect]
     Indication: RENAL CELL CARCINOMA
     Dosage: 50 MG, 1X/DAY
     Route: 048
     Dates: start: 20091210
  2. INDOMETHACIN [Concomitant]
     Indication: GOUT
     Dosage: UNK
     Route: 048
     Dates: end: 20100216
  3. VITAMIN D [Concomitant]
     Dosage: UNK
     Dates: start: 20100101, end: 20100201
  4. POLYETHYLENE GLYCOL [Concomitant]
     Dosage: UNK
     Dates: start: 20091117
  5. ASPIRINE [Concomitant]
     Dosage: UNK
     Dates: start: 20090101, end: 20100301
  6. STOOL SOFTENER [Concomitant]
     Dosage: UNK
     Dates: start: 20091101
  7. TOPIRAMATE [Concomitant]
     Dosage: UNK
     Dates: start: 20030101
  8. LORAZEPAM [Concomitant]
     Dosage: UNK
     Dates: start: 20100106, end: 20100303
  9. AMITRIPTYLINE [Concomitant]
     Dosage: UNK
     Dates: start: 19910101, end: 20100302
  10. PANTOPRAZOLE [Concomitant]
     Dosage: UNK
     Dates: start: 20100120, end: 20100225
  11. PANTOPRAZOLE [Concomitant]
     Dosage: UNK
     Dates: start: 20100225, end: 20100306
  12. FINASTERIDE [Concomitant]
     Dosage: UNK
     Dates: start: 20030101
  13. METFORMIN HYDROCHLORIDE [Concomitant]
     Dosage: UNK
     Dates: start: 20091009, end: 20100217
  14. GLIMEPIRIDE [Concomitant]
     Dosage: UNK
     Dates: start: 20060101, end: 20100218
  15. TERAZOSIN HYDROCHLORIDE [Concomitant]
     Dosage: UNK
     Dates: start: 20091229
  16. HYDROCHLOROTHIAZIDE [Concomitant]
     Dosage: UNK
     Dates: start: 19910101, end: 20100217
  17. PRAMIPEXOLE [Concomitant]
     Dosage: UNK
     Dates: start: 20030101
  18. OXYCODONE HYDROCHLORIDE [Concomitant]
     Dosage: UNK
     Dates: start: 20090916
  19. NORCO [Concomitant]
     Dosage: UNK
     Dates: start: 20070101
  20. AMLODIPINE [Concomitant]
     Dosage: UNK
     Dates: start: 20100218, end: 20100314
  21. ZOLPIDEM TARTRATE [Concomitant]
     Dosage: UNK
     Dates: start: 20100313, end: 20100314
  22. TEMAZEPAM [Concomitant]
     Dosage: UNK
     Dates: start: 20100303, end: 20100312
  23. LOTREL [Concomitant]
     Dosage: UNK
     Dates: start: 19910101, end: 20100217
  24. HYDROCORTISONE/NYSTATIN/OXYTETRACYCLINE [Concomitant]
     Dosage: UNK
     Dates: start: 20091223, end: 20100215

REACTIONS (1)
  - RENAL FAILURE ACUTE [None]
